FAERS Safety Report 13252613 (Version 3)
Quarter: 2017Q1

REPORT INFORMATION
  Report Type: Report from Study
  Country: FR (occurrence: FR)
  Receive Date: 20170220
  Receipt Date: 20170227
  Transmission Date: 20170428
  Serious: Yes (Death, Other)
  Sender: FDA-Public Use
  Company Number: FR-ASTRAZENECA-2017SE18488

PATIENT
  Age: 23815 Day
  Sex: Female
  Weight: 52 kg

DRUGS (2)
  1. PALBOCICLIB [Suspect]
     Active Substance: PALBOCICLIB
     Indication: BREAST CANCER METASTATIC
     Route: 048
     Dates: start: 20161012, end: 20170124
  2. FASLODEX [Suspect]
     Active Substance: FULVESTRANT
     Indication: BREAST CANCER METASTATIC
     Dosage: 500 MG, 1 INJECTION EVERY 4 WEEKS
     Route: 030
     Dates: start: 20161012, end: 20170126

REACTIONS (12)
  - Ascites [Unknown]
  - Feeling abnormal [Unknown]
  - Off label use [Unknown]
  - Acute coronary syndrome [Fatal]
  - Vomiting [Unknown]
  - Gastric ulcer haemorrhage [Fatal]
  - Nausea [Unknown]
  - Neutropenia [Recovered/Resolved]
  - Aspartate aminotransferase increased [Unknown]
  - Gastric ulcer [Fatal]
  - Alanine aminotransferase increased [Unknown]
  - Haematemesis [Fatal]

NARRATIVE: CASE EVENT DATE: 20161230
